FAERS Safety Report 13691970 (Version 2)
Quarter: 2017Q3

REPORT INFORMATION
  Report Type: Spontaneous
  Country: CA (occurrence: CA)
  Receive Date: 20170626
  Receipt Date: 20170707
  Transmission Date: 20171127
  Serious: Yes (Other)
  Sender: FDA-Public Use
  Company Number: GB-009507513-1706GBR011089

PATIENT

DRUGS (1)
  1. NITRO-DUR [Suspect]
     Active Substance: NITROGLYCERIN
     Dosage: UNK

REACTIONS (4)
  - Blood pressure systolic decreased [Unknown]
  - Coma scale abnormal [Unknown]
  - Heart rate decreased [Unknown]
  - Syncope [Unknown]
